FAERS Safety Report 9297684 (Version 2)
Quarter: 2013Q2

REPORT INFORMATION
  Report Type: Spontaneous
  Country: JP (occurrence: JP)
  Receive Date: 20130520
  Receipt Date: 20130528
  Transmission Date: 20140414
  Serious: Yes (Hospitalization, Other)
  Sender: FDA-Public Use
  Company Number: PHHY2012JP033538

PATIENT
  Age: 62 Year
  Sex: 0

DRUGS (47)
  1. CLOZARIL [Suspect]
     Indication: SCHIZOPHRENIA, DISORGANISED TYPE
     Dosage: 12.5 MG, UNK
     Route: 048
     Dates: start: 20110119, end: 20110119
  2. CLOZARIL [Suspect]
     Dosage: 25 MG, UNK
     Route: 048
     Dates: start: 20110120, end: 20110122
  3. CLOZARIL [Suspect]
     Dosage: 50 MG, UNK
     Route: 048
     Dates: start: 20110123, end: 20110125
  4. CLOZARIL [Suspect]
     Dosage: 75 MG, UNK
     Route: 048
     Dates: start: 20110126, end: 20110127
  5. CLOZARIL [Suspect]
     Dosage: 100 MG, UNK
     Route: 048
     Dates: start: 20110128, end: 20110129
  6. CLOZARIL [Suspect]
     Dosage: 125 MG, UNK
     Route: 048
     Dates: start: 20110130, end: 20110201
  7. CLOZARIL [Suspect]
     Dosage: 150 MG, UNK
     Route: 048
     Dates: start: 20110202, end: 20110204
  8. CLOZARIL [Suspect]
     Dosage: 175 MG, UNK
     Route: 048
     Dates: start: 20110205, end: 20110207
  9. CLOZARIL [Suspect]
     Dosage: 200 MG, UNK
     Route: 048
     Dates: start: 20110208, end: 20110315
  10. CLOZARIL [Suspect]
     Dosage: 250 MG, UNK
     Route: 048
     Dates: start: 20110316, end: 20110322
  11. CLOZARIL [Suspect]
     Dosage: 200 MG, UNK
     Route: 048
     Dates: start: 20110323
  12. CLOZARIL [Suspect]
     Dosage: 400 MG DAILY
     Route: 048
     Dates: end: 20120822
  13. CLOZARIL [Suspect]
     Dosage: 400 MG, UNK
     Route: 048
     Dates: start: 20120119, end: 20120221
  14. CLOZARIL [Suspect]
     Dosage: 425 MG, UNK
     Route: 048
     Dates: start: 20120222, end: 20120228
  15. CLOZARIL [Suspect]
     Dosage: 450 MG, UNK
     Route: 048
     Dates: start: 20120229, end: 20120522
  16. CLOZARIL [Suspect]
     Dosage: 425 MG, UNK
     Route: 048
     Dates: start: 20120523, end: 20120529
  17. CLOZARIL [Suspect]
     Dosage: 400 MG, UNK
     Route: 048
     Dates: start: 20120530, end: 20120821
  18. CLOZARIL [Suspect]
     Dosage: 375 MG, UNK
     Route: 048
     Dates: start: 20120822, end: 20120823
  19. FLUMEZIN [Concomitant]
     Dosage: 12 MG, UNK
     Route: 048
     Dates: start: 20110119
  20. FLUMEZIN [Concomitant]
     Dosage: 8 MG, UNK
     Route: 048
  21. FLUMEZIN [Concomitant]
     Dosage: 4 MG, UNK
     Route: 048
     Dates: end: 20110208
  22. AKINETON [Concomitant]
     Indication: SCHIZOPHRENIA, DISORGANISED TYPE
     Dosage: 1 MG, UNK
     Route: 048
     Dates: start: 20110119
  23. AKINETON [Concomitant]
     Dosage: 2 MG, UNK
     Route: 048
  24. AKINETON [Concomitant]
     Dosage: 4 MG, UNK
     Route: 048
  25. AKINETON [Concomitant]
     Dosage: 3 MG, UNK
     Route: 048
     Dates: end: 20120823
  26. LIMAS [Concomitant]
     Indication: PROPHYLAXIS
     Dosage: 600 MG, UNK
     Route: 048
     Dates: start: 20110119
  27. LIMAS [Concomitant]
     Dosage: 500 MG, UNK
     Route: 048
  28. LIMAS [Concomitant]
     Dosage: 400 MG, UNK
     Route: 048
  29. LIMAS [Concomitant]
     Dosage: 500 MG, UNK
     Route: 048
  30. LIMAS [Concomitant]
     Dosage: 600 MG, UNK
     Route: 048
     Dates: end: 20120823
  31. ROZEREM [Concomitant]
     Indication: SCHIZOPHRENIA, DISORGANISED TYPE
     Dosage: 8 MG, UNK
     Route: 048
     Dates: start: 20110119
  32. ROZEREM [Concomitant]
     Dosage: 8 MG, UNK
     Route: 048
  33. ALLELOCK [Concomitant]
     Indication: ASTHMA
     Dosage: 5 MG, UNK
     Route: 048
     Dates: start: 20110119
  34. SULTIMIN [Concomitant]
     Indication: ASTHMA
     Dosage: 5 MG, UNK
     Route: 048
     Dates: start: 20110119
  35. MEPTIN [Concomitant]
     Indication: ASTHMA
     Dosage: 100 UG, UNK
     Route: 048
     Dates: start: 20110119
  36. ONON [Concomitant]
     Indication: ASTHMA
     Dosage: 337.5 MG, UNK
     Route: 048
     Dates: start: 20110119
  37. THEODUR [Concomitant]
     Indication: ASTHMA
     Dosage: 400 MG, UNK
     Dates: start: 20110119
  38. HARNAL [Concomitant]
     Dosage: 0.2 MG, UNK
     Route: 048
     Dates: start: 20110119
  39. NORVASC [Concomitant]
     Dosage: 5 MG, UNK
     Route: 048
  40. PANTOSIN [Concomitant]
     Dosage: 450 MG, UNK
     Route: 048
     Dates: start: 20110318
  41. PANTOSIN [Concomitant]
     Dosage: 600 MG, UNK
     Route: 048
  42. OLANZAPINE [Concomitant]
     Dosage: 20 MG, DAILY
  43. FLUPHENAZINE [Concomitant]
     Dosage: 15 MG, DAY
  44. MAGNESIUM OXIDE [Concomitant]
     Dosage: 3 G, DAY
  45. SENNOSIDE [Concomitant]
     Dosage: 12 MG, DAY
  46. SODIUM PICOSULFATE [Concomitant]
     Dosage: 5 MG, DAY
  47. LACTULOSE [Concomitant]
     Dosage: 60 ML, UNK

REACTIONS (16)
  - Ileus [Unknown]
  - Abdominal distension [Unknown]
  - Abdominal pain [Unknown]
  - Vomiting [Unknown]
  - Subileus [Recovered/Resolved]
  - Pneumatosis intestinalis [Recovered/Resolved]
  - Diverticulitis Meckel^s [Recovered/Resolved]
  - Gastrointestinal perforation [Recovered/Resolved]
  - Shock [Unknown]
  - Constipation [Not Recovered/Not Resolved]
  - Bradykinesia [Unknown]
  - Blood pressure increased [Unknown]
  - Glycosylated haemoglobin increased [Recovering/Resolving]
  - Sedation [Not Recovered/Not Resolved]
  - Haemoglobin decreased [Unknown]
  - Blood pressure diastolic decreased [Unknown]
